FAERS Safety Report 7193650-3 (Version None)
Quarter: 2010Q4

REPORT INFORMATION
  Report Type: 
  Country: None (occurrence: None)
  Receive Date: 20101223
  Receipt Date: 20100908
  Transmission Date: 20110411
  Serious: Yes (Other)
  Sender: FDA-Public Use
  Company Number: US-AMGEN-KDL436955

PATIENT

DRUGS (12)
  1. ENBREL [Suspect]
     Indication: PRODUCT USED FOR UNKNOWN INDICATION
     Dosage: 25 MG, 2 TIMES/WK
     Route: 058
  2. PANTOPRAZOLE [Concomitant]
     Dosage: 20 MG, UNK
     Route: 048
  3. CYCLOSPORINE OPHTHALMIC EMULSION [Concomitant]
     Dosage: .05 %, UNK
  4. ATORVASTATIN CALCIUM [Concomitant]
     Dosage: 10 MG, UNK
     Route: 048
  5. FLUOXETINE [Concomitant]
     Dosage: 10 MG, UNK
     Route: 048
  6. FOLIC ACID [Concomitant]
     Dosage: 1 MG, UNK
     Route: 048
  7. DICYCLOVERINE HYDROCHLORIDE [Concomitant]
     Dosage: 10 MG, UNK
     Route: 048
  8. METOPROLOL TARTRATE [Concomitant]
     Dosage: 100 MG, UNK
     Route: 048
  9. ALPRAZOLAM [Concomitant]
     Dosage: 1 MG, UNK
     Route: 048
  10. TOBRAMYCIN-DEXAMETHASONE [Concomitant]
     Dosage: UNK UNK, UNK
  11. MULTI-VITAMINS [Concomitant]
  12. IMODIUM [Concomitant]
     Dosage: UNK UNK, UNK
     Route: 048

REACTIONS (1)
  - EYE INFECTION [None]
